FAERS Safety Report 10037492 (Version 3)
Quarter: 2014Q2

REPORT INFORMATION
  Report Type: Spontaneous
  Country: AU (occurrence: AU)
  Receive Date: 20140326
  Receipt Date: 20140520
  Transmission Date: 20141212
  Serious: Yes (Other)
  Sender: FDA-Public Use
  Company Number: AU-BAYER-2014-041141

PATIENT
  Sex: Female

DRUGS (1)
  1. CANESTEN CLOTRIMAZOLE THRUSH TREATMENT [Suspect]
     Indication: CANDIDA INFECTION

REACTIONS (3)
  - Injury associated with device [None]
  - Vaginal haemorrhage [None]
  - Device difficult to use [None]
